FAERS Safety Report 9286474 (Version 3)
Quarter: 2013Q4

REPORT INFORMATION
  Report Type: Spontaneous
  Country: US (occurrence: US)
  Receive Date: 20130513
  Receipt Date: 20131217
  Transmission Date: 20140711
  Serious: Yes (Hospitalization)
  Sender: FDA-Public Use
  Company Number: US-BAYER-2013-058945

PATIENT
  Age: 48 Year
  Sex: Female
  Weight: 70.3 kg

DRUGS (2)
  1. YAZ [Suspect]
     Indication: UTERINE HAEMORRHAGE
     Dosage: UNK
     Dates: start: 200712, end: 200808
  2. Z-PAK [Concomitant]

REACTIONS (11)
  - Pulmonary embolism [None]
  - Cough [None]
  - Abdominal pain [None]
  - Anxiety [None]
  - Emotional distress [None]
  - Pain [None]
  - Injury [None]
  - Pain [None]
  - General physical health deterioration [None]
  - Off label use [None]
  - Oxygen saturation decreased [None]
